FAERS Safety Report 21670982 (Version 1)
Quarter: 2022Q4

REPORT INFORMATION
  Report Type: Spontaneous
  Country: US (occurrence: US)
  Receive Date: 20221202
  Receipt Date: 20221202
  Transmission Date: 20230113
  Serious: Yes (Hospitalization, Other)
  Sender: FDA-Public Use
  Company Number: US-MLMSERVICE-20221114-3920547-1

PATIENT
  Age: 40 Year
  Sex: Male

DRUGS (5)
  1. DEXAMETHASONE [Suspect]
     Active Substance: DEXAMETHASONE
     Indication: COVID-19
     Dosage: TAPER
     Route: 065
     Dates: start: 202203
  2. PREDNISONE [Suspect]
     Active Substance: PREDNISONE
     Indication: COVID-19
     Dosage: 0.5 MILLIGRAM/KILOGRAM
     Route: 065
     Dates: start: 2022
  3. REMDESIVIR [Concomitant]
     Active Substance: REMDESIVIR
     Indication: COVID-19
     Dosage: UNK
     Route: 042
     Dates: start: 202203
  4. OXYGEN [Concomitant]
     Active Substance: OXYGEN
     Indication: COVID-19
     Dosage: 2 LITER, 2ND DOSE
     Route: 045
  5. OXYGEN [Concomitant]
     Active Substance: OXYGEN
     Dosage: 4 LITER, 2ND DOSE
     Route: 045

REACTIONS (3)
  - SARS-CoV-2 viraemia [Recovered/Resolved]
  - COVID-19 pneumonia [Recovered/Resolved]
  - Bronchopulmonary aspergillosis [Recovered/Resolved]

NARRATIVE: CASE EVENT DATE: 20220101
